FAERS Safety Report 8621637-X (Version None)
Quarter: 2012Q3

REPORT INFORMATION
  Report Type: 
  Country: None (occurrence: None)
  Receive Date: 20120820
  Receipt Date: 20120820
  Transmission Date: 20120928
  Serious: Yes (Other)
  Sender: FDA-Public Use
  Company Number: None

PATIENT
  Sex: Female

DRUGS (1)
  1. HUMIRA [Suspect]
     Indication: RHEUMATOID ARTHRITIS
     Dosage: HUMIRA 40 MG EVERY 2 WEEKS SUB Q
     Route: 058
     Dates: start: 20120803

REACTIONS (1)
  - RASH GENERALISED [None]
